FAERS Safety Report 14787503 (Version 5)
Quarter: 2019Q1

REPORT INFORMATION
  Report Type: Report from Study
  Country: US (occurrence: US)
  Receive Date: 20180421
  Receipt Date: 20190330
  Transmission Date: 20190417
  Serious: Yes (Hospitalization, Other)
  Sender: FDA-Public Use
  Company Number: PHHY2018US054736

PATIENT
  Age: 17 Year
  Sex: Female
  Weight: 47.6 kg

DRUGS (25)
  1. PREDNISONE. [Concomitant]
     Active Substance: PREDNISONE
     Indication: CHEST PAIN
     Dosage: 60 MG, QD
     Route: 048
     Dates: start: 20170111, end: 20170116
  2. RANITIDINE. [Concomitant]
     Active Substance: RANITIDINE
     Indication: ACIDOSIS
     Dosage: UNK
     Route: 065
     Dates: start: 20181210
  3. TOBI PODHALER [Suspect]
     Active Substance: TOBRAMYCIN
     Dosage: UNK
     Route: 065
     Dates: start: 20180805, end: 20180901
  4. SODIUM CHLORIDE. [Concomitant]
     Active Substance: SODIUM CHLORIDE
     Indication: OBSTRUCTIVE AIRWAYS DISORDER
     Dosage: UNK
     Route: 055
     Dates: start: 20150905
  5. ALBUTEROL. [Concomitant]
     Active Substance: ALBUTEROL
     Indication: PRODUCT USED FOR UNKNOWN INDICATION
     Dosage: UNK
     Route: 055
     Dates: start: 20130210
  6. INFLUENZA VACCINE INACTIVATED [Concomitant]
     Active Substance: INFLUENZA VIRUS VACCINE
     Indication: PROPHYLAXIS
     Dosage: UNK
     Route: 065
     Dates: start: 20161012, end: 20161012
  7. TOBI PODHALER [Suspect]
     Active Substance: TOBRAMYCIN
     Indication: PSEUDOMONAS INFECTION
     Dosage: 112 MG, BID (28 DAYS)
     Route: 055
     Dates: start: 20180215
  8. FLUTICASONE. [Concomitant]
     Active Substance: FLUTICASONE
     Indication: PRODUCT USED FOR UNKNOWN INDICATION
     Dosage: UNK
     Route: 065
     Dates: start: 20141111
  9. ORKAMBI [Concomitant]
     Active Substance: IVACAFTOR\LUMACAFTOR
     Dosage: UNK
     Route: 065
     Dates: start: 20160120
  10. GLUCOSE [Concomitant]
     Active Substance: DEXTROSE
     Indication: GLUCOSE TOLERANCE TEST ABNORMAL
     Dosage: UNK
     Route: 048
     Dates: start: 20180328, end: 20180328
  11. SODIUM CHLORIDE. [Concomitant]
     Active Substance: SODIUM CHLORIDE
     Dosage: 4 ML, BID
     Route: 055
  12. FERROUS SULFATE. [Concomitant]
     Active Substance: FERROUS SULFATE
     Indication: PRODUCT USED FOR UNKNOWN INDICATION
     Dosage: UNK
     Route: 065
     Dates: start: 20160330
  13. GLUCOSE [Concomitant]
     Active Substance: DEXTROSE
     Dosage: UNK
     Route: 048
     Dates: start: 20180516, end: 20180516
  14. TOBI PODHALER [Suspect]
     Active Substance: TOBRAMYCIN
     Indication: CYSTIC FIBROSIS
     Dosage: UNK
     Route: 055
     Dates: start: 20171015, end: 20171111
  15. ZENPEP [Concomitant]
     Active Substance: PANCRELIPASE AMYLASE\PANCRELIPASE LIPASE\PANCRELIPASE PROTEASE
     Indication: PANCREATIC FAILURE
     Dosage: UNK
     Route: 065
  16. CHOLECALCIFEROL [Concomitant]
     Active Substance: CHOLECALCIFEROL
     Indication: PRODUCT USED FOR UNKNOWN INDICATION
     Dosage: UNK
     Route: 065
     Dates: start: 20180402
  17. ALBUTEROL. [Concomitant]
     Active Substance: ALBUTEROL
     Indication: WHEEZING
     Dosage: 2.5 MG, UNK
     Route: 055
  18. INFLUENZA VACCINE INACTIVATED [Concomitant]
     Active Substance: INFLUENZA VIRUS VACCINE
     Dosage: UNK
     Route: 065
     Dates: start: 20171031, end: 20171031
  19. SODIUM CHLORIDE. [Concomitant]
     Active Substance: SODIUM CHLORIDE
     Indication: NASAL CONGESTION
     Dosage: UNK
     Route: 065
     Dates: start: 20180325, end: 20180325
  20. ALBUTEROL. [Concomitant]
     Active Substance: ALBUTEROL
     Dosage: 2.5 MG, BID
     Route: 055
     Dates: start: 20180323
  21. CIPROFLOXACIN. [Concomitant]
     Active Substance: CIPROFLOXACIN
     Indication: CYSTIC FIBROSIS
     Route: 065
  22. TOBI PODHALER [Suspect]
     Active Substance: TOBRAMYCIN
     Dosage: 112 MG, BID (28 DAYS)
     Route: 055
     Dates: start: 20180314
  23. ALBUTEROL. [Concomitant]
     Active Substance: ALBUTEROL
     Indication: COUGH
     Dosage: 90 UG, UNK (CFC FREE)
     Route: 055
     Dates: start: 20130210
  24. SODIUM CHLORIDE. [Concomitant]
     Active Substance: SODIUM CHLORIDE
     Dosage: 4 ML, BID
     Route: 055
     Dates: start: 20180323
  25. GLUCOSE [Concomitant]
     Active Substance: DEXTROSE
     Dosage: UNK
     Route: 048
     Dates: start: 20180402, end: 20180402

REACTIONS (7)
  - Blood glucose increased [Unknown]
  - Anion gap decreased [Unknown]
  - Forced expiratory volume decreased [Unknown]
  - Bronchiectasis [Not Recovered/Not Resolved]
  - Infective pulmonary exacerbation of cystic fibrosis [Recovered/Resolved]
  - Pseudomonas infection [Unknown]
  - Blood alkaline phosphatase decreased [Unknown]

NARRATIVE: CASE EVENT DATE: 20180323
